FAERS Safety Report 5323919-6 (Version None)
Quarter: 2007Q2

REPORT INFORMATION
  Report Type: 
  Country: None (occurrence: None)
  Receive Date: 20070509
  Receipt Date: 20070509
  Transmission Date: 20071010
  Serious: Yes (Hospitalization)
  Sender: FDA-Public Use
  Company Number: None

PATIENT
  Sex: Female

DRUGS (3)
  1. DOCETAXEL 75MG/M2 [Suspect]
     Indication: PERITONEAL CARCINOMA
     Dosage: 122.3 MG IV ON DAY 1 IV
     Route: 042
     Dates: start: 20060821
  2. DOCETAXEL 75MG/M2 [Suspect]
     Indication: PERITONEAL CARCINOMA
     Dosage: 122.3 MG IV ON DAY 1 IV
     Route: 042
     Dates: start: 20060828
  3. GEMCITABINE [Suspect]
     Dosage: 1304 MG IV ON DAYS 1, 8 IV
     Route: 042

REACTIONS (4)
  - HAEMATOCRIT DECREASED [None]
  - PLATELET COUNT INCREASED [None]
  - SMALL INTESTINAL OBSTRUCTION [None]
  - WHITE BLOOD CELL COUNT DECREASED [None]
